FAERS Safety Report 25172378 (Version 1)
Quarter: 2025Q2

REPORT INFORMATION
  Report Type: Report from Study
  Country: CA (occurrence: CA)
  Receive Date: 20250408
  Receipt Date: 20250408
  Transmission Date: 20250717
  Serious: Yes (Other)
  Sender: MYLAN
  Company Number: CA-MYLANLABS-2025M1017457

PATIENT
  Age: 54 Year
  Sex: Male

DRUGS (3)
  1. CLOZAPINE [Suspect]
     Active Substance: CLOZAPINE
     Indication: Psychotic disorder
  2. CLOZAPINE [Suspect]
     Active Substance: CLOZAPINE
     Dosage: 475 MILLIGRAM, QD
     Dates: start: 202302, end: 202502
  3. MELATONIN [Concomitant]
     Active Substance: MELATONIN

REACTIONS (3)
  - Neutropenia [Recovering/Resolving]
  - Leukopenia [Recovering/Resolving]
  - Off label use [Unknown]

NARRATIVE: CASE EVENT DATE: 20230201
